FAERS Safety Report 16917554 (Version 17)
Quarter: 2020Q4

REPORT INFORMATION
  Report Type: Report from Study
  Country: US (occurrence: US)
  Receive Date: 20191015
  Receipt Date: 20201104
  Transmission Date: 20210113
  Serious: Yes (Life-Threatening, Hospitalization, Disabling)
  Sender: FDA-Public Use
  Company Number: US-SA-2019SA043635

PATIENT

DRUGS (46)
  1. ALEMTUZUMAB [Suspect]
     Active Substance: ALEMTUZUMAB
     Indication: RELAPSING MULTIPLE SCLEROSIS
     Dosage: 12 MG, QD
     Route: 041
     Dates: start: 20180917, end: 20180919
  2. LYRICA [Concomitant]
     Active Substance: PREGABALIN
     Indication: MULTIPLE SCLEROSIS
     Dosage: 600 MG
     Route: 048
     Dates: start: 201612
  3. MS CONTIN [Concomitant]
     Active Substance: MORPHINE SULFATE
     Indication: MULTIPLE SCLEROSIS
     Dosage: 60 MG
     Route: 048
     Dates: start: 20171218
  4. SKELAXINE [Concomitant]
     Active Substance: ACETAMINOPHEN\CHLORZOXAZONE
     Indication: MUSCLE SPASMS
     Dosage: 1600 MG
     Route: 048
     Dates: start: 201711
  5. SULFAMETHOXAZOLE AND TRIMETHOPRIM [Concomitant]
     Active Substance: SULFAMETHOXAZOLE\TRIMETHOPRIM
     Indication: PROPHYLAXIS
     Dosage: 800 MG
     Route: 048
     Dates: start: 20180917, end: 20181005
  6. CLINDAMYCIN. [Concomitant]
     Active Substance: CLINDAMYCIN
     Indication: CELLULITIS
     Dosage: 300 MG, TID
     Route: 048
     Dates: start: 20181228, end: 20190106
  7. PREDNISONE. [Concomitant]
     Active Substance: PREDNISONE
     Dosage: 10 MG
     Route: 048
     Dates: start: 20190724, end: 20190730
  8. PREDNISONE. [Concomitant]
     Active Substance: PREDNISONE
     Dosage: 40 UNK
     Route: 048
     Dates: start: 20180924, end: 20180925
  9. CIPROFLOXACIN. [Concomitant]
     Active Substance: CIPROFLOXACIN
     Dosage: 500 MG, BID
     Route: 048
     Dates: start: 20181228, end: 20181228
  10. ALEMTUZUMAB [Suspect]
     Active Substance: ALEMTUZUMAB
     Dosage: 12 MG, QD
     Route: 041
     Dates: start: 20170911, end: 20170915
  11. DANTROLENE. [Concomitant]
     Active Substance: DANTROLENE SODIUM
     Indication: MUSCLE SPASMS
     Dosage: 400 MG
     Route: 048
     Dates: start: 201806
  12. MARINOL [Concomitant]
     Active Substance: DRONABINOL
     Indication: MULTIPLE SCLEROSIS
     Dosage: 5 MG, TID
  13. MORPHINE SULFATE. [Concomitant]
     Active Substance: MORPHINE SULFATE
     Dosage: 30 MG, BID
  14. SYMBICORT [Concomitant]
     Active Substance: BUDESONIDE\FORMOTEROL FUMARATE DIHYDRATE
     Indication: ASTHMA
     Dosage: 1 PUFF
     Route: 050
     Dates: start: 201802
  15. RITALIN [Concomitant]
     Active Substance: METHYLPHENIDATE HYDROCHLORIDE
     Dosage: 40 MG, UNK
     Route: 048
     Dates: start: 201803
  16. LIDODERM [Concomitant]
     Active Substance: LIDOCAINE
     Indication: MULTIPLE SCLEROSIS
     Dosage: 5 % (V/V)
     Route: 061
     Dates: start: 201712
  17. INSULIN B [Concomitant]
     Dosage: UNK UNK, UNK
     Route: 065
  18. FLORASTOR [SACCHAROMYCES BOULARDII] [Concomitant]
     Dosage: 300 MG, TID
     Route: 048
  19. PREDNISONE. [Concomitant]
     Active Substance: PREDNISONE
     Indication: MUSCLE SPASTICITY
     Dosage: 100 MG
     Route: 048
     Dates: start: 20190629, end: 20190701
  20. PREDNISONE. [Concomitant]
     Active Substance: PREDNISONE
     Indication: IMMUNE THROMBOCYTOPENIA
     Dosage: 60 MG
     Route: 048
     Dates: start: 20190710, end: 20190713
  21. ZYPREXA [Concomitant]
     Active Substance: OLANZAPINE
     Indication: MIGRAINE
     Dosage: 10 MG, QD
     Route: 048
     Dates: start: 201802
  22. TRAZODONE [Concomitant]
     Active Substance: TRAZODONE HYDROCHLORIDE
     Indication: INSOMNIA
     Dosage: 100 MG, HS
     Route: 048
     Dates: start: 201802
  23. BACLOFEN. [Concomitant]
     Active Substance: BACLOFEN
     Indication: MULTIPLE SCLEROSIS
     Dosage: 80 MG
     Route: 048
     Dates: start: 2009
  24. PREDNISONE. [Concomitant]
     Active Substance: PREDNISONE
     Dosage: 20 MG
     Route: 048
     Dates: start: 20190717, end: 20190723
  25. PREDNISONE. [Concomitant]
     Active Substance: PREDNISONE
     Dosage: 60 UNK
     Route: 048
     Dates: start: 20180920, end: 20180921
  26. BACTRIM [Concomitant]
     Active Substance: SULFAMETHOXAZOLE\TRIMETHOPRIM
     Dosage: 60 MG, QD
  27. BENADRYL [Concomitant]
     Active Substance: DIPHENHYDRAMINE HYDROCHLORIDE
     Indication: PROPHYLAXIS
     Dosage: 25 MG, UNK
     Route: 048
     Dates: start: 20180917, end: 20180919
  28. PREDNISONE. [Concomitant]
     Active Substance: PREDNISONE
     Indication: PROPHYLAXIS
     Dosage: 60 MG, QD
     Route: 048
     Dates: start: 20190626
  29. PREDNISONE. [Concomitant]
     Active Substance: PREDNISONE
     Dosage: 40 MG
     Route: 048
     Dates: start: 20190818
  30. LYRICA [Concomitant]
     Active Substance: PREGABALIN
     Dosage: 200 MG, TID
  31. CYMBALTA [Concomitant]
     Active Substance: DULOXETINE HYDROCHLORIDE
     Indication: INSOMNIA
     Dosage: 60 MG, QD
     Dates: start: 201802
  32. NICOTINE. [Concomitant]
     Active Substance: NICOTINE
     Dosage: 21 MG NICOTINE PATCH
     Route: 065
  33. MARINOL [Concomitant]
     Active Substance: DRONABINOL
     Dosage: 20 MG
     Route: 048
     Dates: start: 201812
  34. METHYLPREDNISOLONE. [Concomitant]
     Active Substance: METHYLPREDNISOLONE
     Dosage: 20 MG, BID
     Route: 048
  35. PREDNISONE. [Concomitant]
     Active Substance: PREDNISONE
     Dosage: 40 UNK
     Route: 048
     Dates: start: 20180922, end: 20180923
  36. LATUDA [Concomitant]
     Active Substance: LURASIDONE HYDROCHLORIDE
     Indication: MIGRAINE
     Dosage: 40 MG
     Route: 048
     Dates: start: 20190301
  37. BUSPAR [Concomitant]
     Active Substance: BUSPIRONE HYDROCHLORIDE
     Dosage: 7.5 MG, BID
  38. PROAIR HFA [Concomitant]
     Active Substance: ALBUTEROL SULFATE
     Indication: ASTHMA
     Dosage: 2 PUFF
     Route: 050
     Dates: start: 201802
  39. DANTROLENE. [Concomitant]
     Active Substance: DANTROLENE SODIUM
     Dosage: 100 MG, QID
  40. ACETAMINOPHEN. [Concomitant]
     Active Substance: ACETAMINOPHEN
     Indication: PROPHYLAXIS
     Dosage: 1000 MG, UNK
     Route: 048
     Dates: start: 20180917, end: 20180919
  41. MARINOL [Concomitant]
     Active Substance: DRONABINOL
     Dosage: 15 MG
     Route: 048
     Dates: start: 20180920, end: 201811
  42. PREDNISONE. [Concomitant]
     Active Substance: PREDNISONE
     Dosage: 40 MG
     Route: 048
     Dates: start: 20190714, end: 20190714
  43. PREDNISONE. [Concomitant]
     Active Substance: PREDNISONE
     Dosage: 60 MG
     Route: 048
     Dates: start: 20190710, end: 20190713
  44. BUSPAR [Concomitant]
     Active Substance: BUSPIRONE HYDROCHLORIDE
     Indication: ANXIETY
     Dosage: 15 MG
     Route: 048
     Dates: start: 201802
  45. RITALIN [Concomitant]
     Active Substance: METHYLPHENIDATE HYDROCHLORIDE
     Indication: MULTIPLE SCLEROSIS
     Dosage: 20 MG, BID
     Route: 048
     Dates: start: 20170809
  46. ACICLOVIR [Concomitant]
     Active Substance: ACYCLOVIR
     Indication: PROPHYLAXIS
     Dosage: 400 MG
     Route: 048
     Dates: start: 20180917

REACTIONS (9)
  - Immune thrombocytopenia [Not Recovered/Not Resolved]
  - Hepatitis B virus test positive [Not Recovered/Not Resolved]
  - Hypotension [Recovered/Resolved]
  - Breast ulceration [Recovered/Resolved]
  - Skin ulcer [Recovered/Resolved]
  - Cellulitis [Recovered/Resolved]
  - Hepatitis C [Not Recovered/Not Resolved]
  - Drug abuse [Not Recovered/Not Resolved]
  - Platelet count decreased [Recovered/Resolved]

NARRATIVE: CASE EVENT DATE: 201811
